FAERS Safety Report 8204315-0 (Version None)
Quarter: 2012Q1

REPORT INFORMATION
  Report Type: 
  Country: None (occurrence: None)
  Receive Date: 20120313
  Receipt Date: 20120306
  Transmission Date: 20120608
  Serious: Yes (Other)
  Sender: FDA-Public Use
  Company Number: PT-PFIZER INC-2012056615

PATIENT
  Age: 20 Year
  Sex: Male

DRUGS (5)
  1. REFACTO [Suspect]
     Dosage: UNK
     Route: 042
     Dates: start: 20101001, end: 20101001
  2. REFACTO [Suspect]
     Indication: HAEMORRHAGE PROPHYLAXIS
     Dosage: UNK
     Route: 042
     Dates: start: 20101001, end: 20101001
  3. REFACTO [Suspect]
     Dosage: UNK
     Route: 042
     Dates: start: 20110301, end: 20110301
  4. REFACTO [Suspect]
     Dosage: UNK
     Route: 042
     Dates: start: 20120203, end: 20120207
  5. REFACTO [Suspect]
     Dosage: UNK
     Route: 042
     Dates: start: 20120215, end: 20120216

REACTIONS (2)
  - POST PROCEDURAL HAEMORRHAGE [None]
  - ANTI FACTOR VIII ANTIBODY POSITIVE [None]
